FAERS Safety Report 8596735-X (Version None)
Quarter: 2012Q3

REPORT INFORMATION
  Report Type: 
  Country: None (occurrence: None)
  Receive Date: 20120802
  Receipt Date: 20120725
  Transmission Date: 20120928
  Serious: Yes (Hospitalization)
  Sender: FDA-Public Use
  Company Number: 2012000189

PATIENT
  Age: 83 Year
  Sex: Male

DRUGS (7)
  1. ATENOLOL [Suspect]
     Indication: HYPERTENSION
     Dosage: 50 MG, QD, ORAL
     Route: 048
  2. DUOPLAVIN (ACETYLSALICYLIC AND CLOPIDORGEL BISULFATE) [Suspect]
     Indication: PROPHYLAXIS
     Dosage: 1 DF, ORAL
     Route: 048
  3. LASIX [Suspect]
     Indication: HYPERTENSION
     Dosage: 40 MG, QD, ORAL
     Route: 048
  4. ACEON [Suspect]
     Indication: PRODUCT USED FOR UNKNOWN INDICATION
     Dosage: 5 MG, QD, ORAL
     Route: 048
  5. CRESTOR [Suspect]
     Indication: PROPHYLAXIS
     Dosage: 20 MG, QD, ORAL
     Route: 048
  6. METFORMIN HCL [Suspect]
     Indication: TYPE 2 DIABETES MELLITUS
     Dosage: 3 G, TID, ORAL
     Route: 048
  7. PROPILTHIOURACIL (PROPYTHIOURACIL) [Suspect]
     Indication: HYPERTHYROIDISM
     Dosage: 5 MG, QD, ORAL
     Route: 048
     Dates: start: 20120430, end: 20120610

REACTIONS (3)
  - CHOLESTASIS [None]
  - RENAL FAILURE ACUTE [None]
  - CYTOLYTIC HEPATITIS [None]
